FAERS Safety Report 7170538-5 (Version None)
Quarter: 2010Q4

REPORT INFORMATION
  Report Type: 
  Country: None (occurrence: None)
  Receive Date: 20101217
  Receipt Date: 20101210
  Transmission Date: 20110411
  Serious: Yes (Other)
  Sender: FDA-Public Use
  Company Number: US-AMGEN-USASP2010008617

PATIENT

DRUGS (1)
  1. ENBREL [Suspect]
     Indication: PSORIATIC ARTHROPATHY
     Dosage: 50 MG, 2 TIMES/WK
     Dates: start: 20100301, end: 20101205

REACTIONS (4)
  - HEPATIC FUNCTION ABNORMAL [None]
  - INJECTION SITE NERVE DAMAGE [None]
  - INJECTION SITE PAIN [None]
  - INJECTION SITE SWELLING [None]
